FAERS Safety Report 5118040-6 (Version None)
Quarter: 2006Q3

REPORT INFORMATION
  Report Type: 
  Country: None (occurrence: None)
  Receive Date: 20060929
  Receipt Date: 20060822
  Transmission Date: 20061208
  Serious: Yes (Hospitalization)
  Sender: FDA-Public Use
  Company Number: FR-ROXANE LABORATORIES, INC-2006-DE-04414GD

PATIENT
  Age: 21 Year
  Sex: Female

DRUGS (5)
  1. PREDNISONE [Suspect]
     Indication: POLYMYOSITIS
  2. PREDNISONE [Suspect]
  3. METHOTREXATE [Suspect]
     Indication: POLYMYOSITIS
     Dosage: 30 MG/WEEK
     Route: 030
  4. AZATHIOPRINE [Suspect]
     Indication: POLYMYOSITIS
  5. INTRAVENOUS IMMUNOGLOBULINS [Concomitant]
     Indication: POLYMYOSITIS
     Dosage: 1 G/KG ON 2 CONSECUTIVE DAYS EVERY 6 WEEKS
     Route: 042

REACTIONS (2)
  - CONDITION AGGRAVATED [None]
  - CUTANEOUS LEISHMANIASIS [None]
